FAERS Safety Report 12295696 (Version 4)
Quarter: 2017Q1

REPORT INFORMATION
  Report Type: Report from Study
  Country: IL (occurrence: IL)
  Receive Date: 20160422
  Receipt Date: 20170127
  Transmission Date: 20170428
  Serious: Yes (Hospitalization, Other)
  Sender: FDA-Public Use
  Company Number: PHHY2016IL020763

PATIENT
  Age: 51 Year
  Sex: Female

DRUGS (1)
  1. GILENYA [Suspect]
     Active Substance: FINGOLIMOD HYDROCHLORIDE
     Indication: MULTIPLE SCLEROSIS
     Dosage: 0.5 MG, QD
     Route: 048
     Dates: start: 20141125

REACTIONS (9)
  - Ocular hyperaemia [Unknown]
  - Eye infection [Recovering/Resolving]
  - Diplopia [Recovered/Resolved]
  - Superficial injury of eye [Unknown]
  - Eye inflammation [Unknown]
  - Eye infection [Recovered/Resolved]
  - Panophthalmitis [Unknown]
  - Vision blurred [Not Recovered/Not Resolved]
  - Eye pain [Not Recovered/Not Resolved]

NARRATIVE: CASE EVENT DATE: 20160214
